FAERS Safety Report 9333778 (Version 1)
Quarter: 2013Q2

REPORT INFORMATION
  Report Type: Spontaneous
  Country: US (occurrence: US)
  Receive Date: 20130606
  Receipt Date: 20130606
  Transmission Date: 20140414
  Serious: No
  Sender: FDA-Public Use
  Company Number: US-AMGEN-USASP2013002673

PATIENT
  Age: 82 Year
  Sex: Female

DRUGS (4)
  1. PROLIA [Suspect]
     Indication: PRODUCT USED FOR UNKNOWN INDICATION
  2. ASPIRIN [Concomitant]
  3. POTASSIUM [Concomitant]
  4. VITAMIN D                          /00107901/ [Concomitant]

REACTIONS (1)
  - Toothache [Unknown]
